FAERS Safety Report 11776497 (Version 1)
Quarter: 2015Q4

REPORT INFORMATION
  Report Type: Spontaneous
  Country: US (occurrence: None)
  Receive Date: 20151123
  Receipt Date: 20151123
  Transmission Date: 20160304
  Serious: No
  Sender: FDA-Public Use
  Company Number: None

PATIENT
  Age: 60 Year
  Sex: Female

DRUGS (5)
  1. TOPAMAX [Concomitant]
     Active Substance: TOPIRAMATE
  2. EXEMESTANE. [Concomitant]
     Active Substance: EXEMESTANE
  3. FYCOPRA [Concomitant]
  4. AFINITOR [Suspect]
     Active Substance: EVEROLIMUS
     Indication: BREAST CANCER
     Route: 048
  5. KEPPRA [Concomitant]
     Active Substance: LEVETIRACETAM

REACTIONS (4)
  - Back pain [None]
  - Drug dose omission [None]
  - Oropharyngeal pain [None]
  - Nasopharyngitis [None]

NARRATIVE: CASE EVENT DATE: 20151014
